FAERS Safety Report 5341772-1 (Version None)
Quarter: 2007Q2

REPORT INFORMATION
  Report Type: 
  Country: None (occurrence: None)
  Receive Date: 20070601
  Receipt Date: 20070523
  Transmission Date: 20071010
  Serious: Yes (Hospitalization, Other)
  Sender: FDA-Public Use
  Company Number: JP-ELI_LILLY_AND_COMPANY-JP200606003674

PATIENT
  Age: 50 Year
  Sex: Male

DRUGS (2)
  1. HUMALOG [Suspect]
     Indication: DIABETES MELLITUS
  2. PENFILL R [Concomitant]
     Indication: DIABETES MELLITUS

REACTIONS (10)
  - ANTI-INSULIN ANTIBODY POSITIVE [None]
  - CASTLEMAN'S DISEASE [None]
  - DRUG HYPERSENSITIVITY [None]
  - GLYCOSYLATED HAEMOGLOBIN INCREASED [None]
  - HYPERGLYCAEMIA [None]
  - INSULIN RESISTANCE [None]
  - LYMPHADENOPATHY [None]
  - PYREXIA [None]
  - RETINOPATHY [None]
  - WEIGHT DECREASED [None]
